FAERS Safety Report 9167805 (Version 2)
Quarter: 2013Q1

REPORT INFORMATION
  Report Type: Spontaneous
  Country: FR (occurrence: FR)
  Receive Date: 20130318
  Receipt Date: 20130322
  Transmission Date: 20140127
  Serious: Yes (Death)
  Sender: FDA-Public Use
  Company Number: PHHY2013FR025859

PATIENT
  Sex: Female

DRUGS (1)
  1. GLIVEC [Suspect]
     Indication: GASTROINTESTINAL STROMAL TUMOUR
     Dosage: UNK
     Route: 048
     Dates: end: 201210

REACTIONS (5)
  - Gastrointestinal stromal tumour [Fatal]
  - Nodule [Fatal]
  - Tumour rupture [Fatal]
  - Intra-abdominal haemorrhage [Fatal]
  - Anaemia [Unknown]
